FAERS Safety Report 6354905-5 (Version None)
Quarter: 2009Q3

REPORT INFORMATION
  Report Type: 
  Country: None (occurrence: None)
  Receive Date: 20090914
  Receipt Date: 20090902
  Transmission Date: 20100115
  Serious: Yes (Other)
  Sender: FDA-Public Use
  Company Number: GB-MERCK-0909GBR00009

PATIENT
  Age: 67 Year
  Sex: Female

DRUGS (20)
  1. SINGULAIR [Suspect]
     Indication: ASTHMA
     Route: 048
     Dates: start: 20090723
  2. WARFARIN SODIUM [Suspect]
     Route: 048
     Dates: start: 20040623, end: 20050509
  3. WARFARIN SODIUM [Suspect]
     Route: 048
     Dates: start: 20050510
  4. CALCIUM CARBONATE AND CHOLECALCIFEROL [Concomitant]
     Route: 048
     Dates: start: 20090630
  5. AZITHROMYCIN [Concomitant]
     Route: 048
     Dates: start: 20090602
  6. BENZOCAINE [Concomitant]
     Route: 048
     Dates: start: 20090501
  7. CARBOCYSTEINE [Concomitant]
     Route: 048
     Dates: start: 20090602
  8. CLARITHROMYCIN [Concomitant]
     Route: 048
     Dates: start: 20090718
  9. AMILORIDE HYDROCHLORIDE AND FUROSEMIDE [Concomitant]
     Route: 048
     Dates: start: 20040623
  10. CODEINE [Concomitant]
     Route: 048
     Dates: start: 20090615
  11. DIAZEPAM [Concomitant]
     Route: 048
     Dates: start: 20080813
  12. PSYLLIUM HUSK [Concomitant]
     Route: 048
     Dates: start: 20070626
  13. LEVOTHYROXINE SODIUM [Concomitant]
     Route: 048
     Dates: start: 20090310
  14. LEVOTHYROXINE SODIUM [Concomitant]
     Route: 048
     Dates: start: 20070725
  15. PREDNISOLONE [Concomitant]
     Route: 048
     Dates: start: 20090514
  16. PREDNISOLONE [Concomitant]
     Route: 048
     Dates: start: 20090723
  17. RISEDRONATE SODIUM [Concomitant]
     Route: 048
     Dates: start: 20051107
  18. BUDESONIDE AND FORMOTEROL FUMARATE [Concomitant]
     Dates: start: 20090723
  19. TERBUTALINE SULFATE [Concomitant]
     Dates: start: 20080911
  20. ZOLPIDEM TARTRATE [Concomitant]
     Route: 048
     Dates: start: 20070207

REACTIONS (2)
  - DRUG INTERACTION [None]
  - INTERNATIONAL NORMALISED RATIO ABNORMAL [None]
